APPROVED DRUG PRODUCT: SODIUM CHLORIDE 0.9% IN PLASTIC CONTAINER
Active Ingredient: SODIUM CHLORIDE
Strength: 900MG/100ML
Dosage Form/Route: INJECTABLE;INJECTION
Application: N019635 | Product #002 | TE Code: AP
Applicant: B BRAUN MEDICAL INC
Approved: Mar 9, 1988 | RLD: Yes | RS: Yes | Type: RX